FAERS Safety Report 5168199-X (Version None)
Quarter: 2006Q4

REPORT INFORMATION
  Report Type: 
  Country: None (occurrence: None)
  Receive Date: 20061208
  Receipt Date: 20061201
  Transmission Date: 20070319
  Serious: Yes (Hospitalization)
  Sender: FDA-Public Use
  Company Number: US-JNJFOC-20061201175

PATIENT
  Sex: Female

DRUGS (18)
  1. INFLIXIMAB [Suspect]
     Indication: RHEUMATOID ARTHRITIS
  2. METFORMIN [Concomitant]
  3. PROTONIX [Concomitant]
  4. ALBUTEROL [Concomitant]
  5. ASPIRIN [Concomitant]
  6. DETROL [Concomitant]
  7. FOSAMAX [Concomitant]
  8. MIRALAX [Concomitant]
  9. FOLIC ACID [Concomitant]
  10. ISOSORBIDE [Concomitant]
  11. METHOTREXATE [Concomitant]
  12. METOCLOPRAMIDE [Concomitant]
  13. METOPROLOL SUCCINATE [Concomitant]
  14. PREDNISONE TAB [Concomitant]
  15. SEREVENT [Concomitant]
  16. ACIPHEX [Concomitant]
  17. FLOVENT [Concomitant]
  18. SINGULAIR [Concomitant]

REACTIONS (1)
  - CHRONIC OBSTRUCTIVE PULMONARY DISEASE [None]
